FAERS Safety Report 4789435-5 (Version None)
Quarter: 2005Q4

REPORT INFORMATION
  Report Type: 
  Country: None (occurrence: None)
  Receive Date: 20051004
  Receipt Date: 20050920
  Transmission Date: 20060501
  Serious: Yes (Hospitalization)
  Sender: FDA-Public Use
  Company Number: CAMP-10016

PATIENT
  Age: 69 Year
  Sex: Female
  Weight: 69.4003 kg

DRUGS (7)
  1. CAMPATH [Suspect]
     Indication: LYMPHOMA
     Dosage: 20 MG QOD SC
     Route: 058
     Dates: start: 20050523, end: 20050706
  2. RITUXIMAB [Suspect]
     Indication: LYMPHOMA
     Dosage: 715 MG 1XW IV
     Route: 042
     Dates: start: 20050523, end: 20050705
  3. BACTRIM [Concomitant]
  4. CIPRO [Concomitant]
  5. DIFLUCAN [Concomitant]
  6. FAMVIR [Concomitant]
  7. PRILOSEC [Concomitant]

REACTIONS (14)
  - ACTIVITIES OF DAILY LIVING IMPAIRED [None]
  - ALANINE AMINOTRANSFERASE INCREASED [None]
  - ASPARTATE AMINOTRANSFERASE INCREASED [None]
  - ASTHENIA [None]
  - BLOOD LACTATE DEHYDROGENASE INCREASED [None]
  - CANDIDIASIS [None]
  - CYTOMEGALOVIRUS INFECTION [None]
  - HAEMOGLOBIN DECREASED [None]
  - HYPERHIDROSIS [None]
  - HYPOTENSION [None]
  - HYPOVOLAEMIA [None]
  - INFLUENZA [None]
  - NAUSEA [None]
  - VOMITING [None]
